FAERS Safety Report 24564726 (Version 1)
Quarter: 2024Q4

REPORT INFORMATION
  Report Type: Spontaneous
  Country: US (occurrence: None)
  Receive Date: 20241029
  Receipt Date: 20241029
  Transmission Date: 20250115
  Serious: Yes (Other)
  Sender: Public
  Company Number: None

PATIENT
  Age: 46 Year
  Sex: Female
  Weight: 60.8 kg

DRUGS (2)
  1. MOXIFLOXACIN [Suspect]
     Active Substance: MOXIFLOXACIN
     Indication: Surgery
     Route: 047
     Dates: start: 20241022, end: 20241022
  2. MOXIFLOXACIN [Suspect]
     Active Substance: MOXIFLOXACIN
     Indication: Prophylaxis

REACTIONS (2)
  - Toxic anterior segment syndrome [None]
  - Cataract operation complication [None]

NARRATIVE: CASE EVENT DATE: 20241022
